FAERS Safety Report 7126404-4 (Version None)
Quarter: 2010Q4

REPORT INFORMATION
  Report Type: 
  Country: None (occurrence: None)
  Receive Date: 20101129
  Receipt Date: 20101122
  Transmission Date: 20110411
  Serious: Yes (Other)
  Sender: FDA-Public Use
  Company Number: IT-PFIZER INC-2010157623

PATIENT
  Sex: Male

DRUGS (1)
  1. TROZOCINA [Suspect]
     Indication: BRONCHITIS
     Dosage: 500 MG
     Route: 048
     Dates: start: 20101001, end: 20101001

REACTIONS (1)
  - HAEMATOSPERMIA [None]
